FAERS Safety Report 23601592 (Version 1)
Quarter: 2024Q1

REPORT INFORMATION
  Report Type: Spontaneous
  Country: US (occurrence: None)
  Receive Date: 20240306
  Receipt Date: 20240306
  Transmission Date: 20240410
  Serious: Yes (Other)
  Sender: FDA-Public Use
  Company Number: None

PATIENT
  Sex: Male

DRUGS (3)
  1. AMBRISENTAN [Suspect]
     Active Substance: AMBRISENTAN
     Indication: Pulmonary arterial hypertension
     Dosage: FREQUENCY : DAILY;?OTHER ROUTE : G TUBE;?
     Route: 050
     Dates: start: 202402
  2. SILDENAFIL [Concomitant]
     Active Substance: SILDENAFIL
  3. TRACLEER [Concomitant]
     Active Substance: BOSENTAN

REACTIONS (1)
  - Hepatic function abnormal [None]
